FAERS Safety Report 7718909-X (Version None)
Quarter: 2011Q3

REPORT INFORMATION
  Report Type: 
  Country: None (occurrence: None)
  Receive Date: 20110830
  Receipt Date: 20110823
  Transmission Date: 20111222
  Serious: Yes (Death, Hospitalization, Disabling)
  Sender: FDA-Public Use
  Company Number: US-SANOFI-AVENTIS-2011SA054199

PATIENT
  Age: 85 Year
  Sex: Female

DRUGS (2)
  1. DIABETA [Suspect]
     Route: 065
     Dates: start: 20080101, end: 20080101
  2. LANTUS [Suspect]
     Dosage: EVERY 12 HOURS
     Route: 058
     Dates: start: 20080101, end: 20080101

REACTIONS (7)
  - DEVICE RELATED INFECTION [None]
  - FALL [None]
  - CONTUSION [None]
  - PNEUMONIA [None]
  - ABASIA [None]
  - CARDIAC ARREST [None]
  - SEPSIS [None]
